FAERS Safety Report 9886048 (Version 1)
Quarter: 2013Q4

REPORT INFORMATION
  Report Type: Spontaneous
  Country: US (occurrence: None)
  Receive Date: 20131223
  Receipt Date: 20131223
  Transmission Date: 20140711
  Serious: Yes (Other)
  Sender: FDA-Public Use
  Company Number: 217364LEO

PATIENT
  Age: 70 Year
  Sex: Male

DRUGS (2)
  1. PICATO GEL [Suspect]
     Indication: ACTINIC KERATOSIS
     Route: 061
     Dates: start: 20120423, end: 20120425
  2. IBUPROFEN (IBUPROFEN) (200 MG) [Concomitant]

REACTIONS (2)
  - Application site vesicles [None]
  - Application site pustules [None]
